FAERS Safety Report 5404248-9 (Version None)
Quarter: 2007Q3

REPORT INFORMATION
  Report Type: 
  Country: None (occurrence: None)
  Receive Date: 20070731
  Receipt Date: 20070720
  Transmission Date: 20080115
  Serious: Yes (Other)
  Sender: FDA-Public Use
  Company Number: 016528

PATIENT
  Age: 67 Year
  Sex: Male

DRUGS (1)
  1. METHOTREXATE(METHOTREXATE) TABLET, 2.5MG [Suspect]
     Indication: PITYRIASIS RUBRA PILARIS
     Dosage: 15-25 MG/WEEK,

REACTIONS (3)
  - MYCOBACTERIUM AVIUM COMPLEX INFECTION [None]
  - PNEUMONIA [None]
  - SINUS CONGESTION [None]
